FAERS Safety Report 25259086 (Version 1)
Quarter: 2025Q2

REPORT INFORMATION
  Report Type: Spontaneous
  Country: US (occurrence: None)
  Receive Date: 20250430
  Receipt Date: 20250430
  Transmission Date: 20250716
  Serious: Yes (Hospitalization)
  Sender: FDA-CTU
  Company Number: None

PATIENT
  Age: 21 Year
  Sex: Female

DRUGS (9)
  1. HUMIRA [Suspect]
     Active Substance: ADALIMUMAB
     Indication: Hidradenitis
     Route: 058
     Dates: start: 20250103
  2. LOSARTAN [Concomitant]
     Active Substance: LOSARTAN
  3. ADDERALL [Concomitant]
     Active Substance: AMPHETAMINE ASPARTATE\AMPHETAMINE SULFATE\DEXTROAMPHETAMINE SACCHARATE\DEXTROAMPHETAMINE SULFATE
  4. EMGALITY [Concomitant]
     Active Substance: GALCANEZUMAB-GNLM
  5. ESOMEPRAZOLE [Concomitant]
     Active Substance: ESOMEPRAZOLE
  6. FAMOTIDINE [Concomitant]
     Active Substance: FAMOTIDINE
  7. HGTZ [Concomitant]
  8. LINZESS [Concomitant]
     Active Substance: LINACLOTIDE
  9. MOUNJARO [Concomitant]
     Active Substance: TIRZEPATIDE

REACTIONS (5)
  - Circulatory collapse [None]
  - Blood potassium decreased [None]
  - White blood cell count decreased [None]
  - Blood pressure decreased [None]
  - Loss of personal independence in daily activities [None]

NARRATIVE: CASE EVENT DATE: 20250424
